FAERS Safety Report 18652546 (Version 1)
Quarter: 2020Q4

REPORT INFORMATION
  Report Type: Spontaneous
  Country: FR (occurrence: FR)
  Receive Date: 20201223
  Receipt Date: 20201223
  Transmission Date: 20210114
  Serious: Yes (Hospitalization, Disabling)
  Sender: FDA-Public Use
  Company Number: FR-INSMED, INC.-E2B_00000415

PATIENT
  Age: 44 Year
  Sex: Female
  Weight: 47 kg

DRUGS (7)
  1. ARIKAYCE [Suspect]
     Active Substance: AMIKACIN
     Indication: MYCOBACTERIUM AVIUM COMPLEX INFECTION
     Route: 055
     Dates: start: 202001, end: 20200408
  2. SIVEXTRO [Suspect]
     Active Substance: TEDIZOLID PHOSPHATE
     Indication: MYCOBACTERIUM AVIUM COMPLEX INFECTION
     Route: 048
     Dates: start: 202001, end: 20200408
  3. ZOPICLONE [Suspect]
     Active Substance: ZOPICLONE
     Indication: PRODUCT USED FOR UNKNOWN INDICATION
     Route: 048
  4. SIRTURO [Suspect]
     Active Substance: BEDAQUILINE FUMARATE
     Indication: MYCOBACTERIUM AVIUM COMPLEX INFECTION
     Route: 048
     Dates: start: 202001, end: 20200408
  5. ETHAMBUTOL [Suspect]
     Active Substance: ETHAMBUTOL HYDROCHLORIDE
     Indication: MYCOBACTERIUM AVIUM COMPLEX INFECTION
     Route: 048
     Dates: start: 202001, end: 20200408
  6. VENLAFAXINE [Suspect]
     Active Substance: VENLAFAXINE HYDROCHLORIDE
     Indication: DEPRESSION
     Route: 048
  7. ZAVICEFTA 2 G/0,5 G, POUDRE POUR SOLUTION ? DILUER POUR PERFUSION [Suspect]
     Active Substance: AVIBACTAM SODIUM\CEFTAZIDIME
     Indication: MYCOBACTERIUM AVIUM COMPLEX INFECTION
     Route: 042
     Dates: start: 202001, end: 20200408

REACTIONS (3)
  - Tinnitus [Not Recovered/Not Resolved]
  - Presbyacusis [Not Recovered/Not Resolved]
  - Hepatocellular injury [Recovered/Resolved]

NARRATIVE: CASE EVENT DATE: 20200408
